FAERS Safety Report 5812600-2 (Version None)
Quarter: 2008Q3

REPORT INFORMATION
  Report Type: 
  Country: None (occurrence: None)
  Receive Date: 20080711
  Receipt Date: 20080627
  Transmission Date: 20090109
  Serious: Yes (Hospitalization)
  Sender: FDA-Public Use
  Company Number: 2005BI012708

PATIENT
  Age: 63 Year
  Sex: Female
  Weight: 166.9237 kg

DRUGS (6)
  1. AVONEX [Suspect]
     Indication: MULTIPLE SCLEROSIS
     Dosage: 30 UG; QW; IM; 30 UG; QW; IM; 30 UG; QW; IM
     Route: 030
     Dates: start: 20010401, end: 20030101
  2. AVONEX [Suspect]
     Indication: MULTIPLE SCLEROSIS
     Dosage: 30 UG; QW; IM; 30 UG; QW; IM; 30 UG; QW; IM
     Route: 030
     Dates: start: 20030101, end: 20060601
  3. AVONEX [Suspect]
     Indication: MULTIPLE SCLEROSIS
     Dosage: 30 UG; QW; IM; 30 UG; QW; IM; 30 UG; QW; IM
     Route: 030
     Dates: start: 20061001
  4. ATENOLOL (CON.) [Concomitant]
  5. XANAX (CON.) [Concomitant]
  6. TYLENOL (CON.) [Concomitant]

REACTIONS (3)
  - CARDIAC FAILURE CONGESTIVE [None]
  - CEREBROVASCULAR ACCIDENT [None]
  - DYSSTASIA [None]
